FAERS Safety Report 6069529-7 (Version None)
Quarter: 2009Q1

REPORT INFORMATION
  Report Type: 
  Country: None (occurrence: None)
  Receive Date: 20090206
  Receipt Date: 20090204
  Transmission Date: 20090719
  Serious: Yes (Other)
  Sender: FDA-Public Use
  Company Number: FR-ROXANE LABORATORIES, INC.-2009-RO-00112RO

PATIENT
  Age: 4 Year
  Sex: Male

DRUGS (8)
  1. METHOTREXATE [Suspect]
     Indication: ACUTE LYMPHOCYTIC LEUKAEMIA
  2. PURINETHOL [Suspect]
     Indication: ACUTE LYMPHOCYTIC LEUKAEMIA
  3. PURINETHOL [Suspect]
  4. PURINETHOL [Suspect]
  5. PURINETHOL [Suspect]
  6. CO-TRIMOXAZOLE [Suspect]
     Indication: ANTIFUNGAL PROPHYLAXIS
  7. BETAMETHASONE DIPROPIONATE [Concomitant]
     Indication: PALMAR-PLANTAR ERYTHRODYSAESTHESIA SYNDROME
     Route: 061
  8. THIOGUANINE [Concomitant]

REACTIONS (4)
  - DRUG TOXICITY [None]
  - PALMAR-PLANTAR ERYTHRODYSAESTHESIA SYNDROME [None]
  - THERAPEUTIC RESPONSE DECREASED [None]
  - WHITE BLOOD CELL DISORDER [None]
